FAERS Safety Report 6716901-5 (Version None)
Quarter: 2010Q2

REPORT INFORMATION
  Report Type: 
  Country: None (occurrence: None)
  Receive Date: 20100510
  Receipt Date: 20100505
  Transmission Date: 20101027
  Serious: Yes (Death, Disabling, Other)
  Sender: FDA-Public Use
  Company Number: US-ASTRAZENECA-2010SE08266

PATIENT
  Age: 60 Year

DRUGS (2)
  1. SEROQUEL [Suspect]
     Indication: BIPOLAR DISORDER
     Route: 048
  2. NORCO [Concomitant]

REACTIONS (4)
  - DEMENTIA [None]
  - RENAL FAILURE [None]
  - SUDDEN CARDIAC DEATH [None]
  - SURGERY [None]
